FAERS Safety Report 16248527 (Version 2)
Quarter: 2019Q2

REPORT INFORMATION
  Report Type: Spontaneous
  Country: US (occurrence: US)
  Receive Date: 20190429
  Receipt Date: 20190503
  Transmission Date: 20190711
  Serious: No
  Sender: FDA-Public Use
  Company Number: US-JNJFOC-20190420773

PATIENT
  Age: 62 Year
  Sex: Male
  Weight: 67.13 kg

DRUGS (1)
  1. CONCERTA [Suspect]
     Active Substance: METHYLPHENIDATE HYDROCHLORIDE
     Indication: NARCOLEPSY
     Route: 048
     Dates: start: 20190407

REACTIONS (4)
  - Wrong technique in product usage process [Unknown]
  - Product dose omission [Unknown]
  - Off label use [Unknown]
  - Wrong dose [Unknown]

NARRATIVE: CASE EVENT DATE: 201904
